FAERS Safety Report 8285150-4 (Version None)
Quarter: 2012Q2

REPORT INFORMATION
  Report Type: 
  Country: None (occurrence: None)
  Receive Date: 20120413
  Receipt Date: 20110718
  Transmission Date: 20120825
  Serious: No
  Sender: FDA-Public Use
  Company Number: US-ASTRAZENECA-2011SE42884

PATIENT
  Sex: Female

DRUGS (28)
  1. SINGULAIR [Concomitant]
  2. DESIPRAMINE HYDROCHLORIDE [Concomitant]
     Indication: DEPRESSION
  3. NOHIST/DIHYDRO PE [Concomitant]
     Indication: SINUS DISORDER
  4. AZITHROMYCIN [Concomitant]
  5. PROAIR HFA [Concomitant]
  6. NASONEX [Concomitant]
  7. PAROXETINE [Concomitant]
  8. METHYLPREDNISOLONE [Concomitant]
  9. PREDNISONE TAB [Concomitant]
  10. DILTIAZEM HCL [Concomitant]
  11. NOHIST/DIHYDRO PE [Concomitant]
     Indication: COUGH
  12. MUCINEX [Concomitant]
     Indication: NASAL CONGESTION
  13. TRIMETHOPRIM [Concomitant]
  14. DOXYCYCL HYC [Concomitant]
  15. CYANOCOBALAM [Concomitant]
  16. PROMETHAZINE [Concomitant]
     Indication: VOMITING
  17. CEFUROXIME [Concomitant]
  18. IPRATROPIUM BROMIDE [Concomitant]
  19. LEVAQUIN [Concomitant]
  20. ASTEPRO [Concomitant]
  21. NOHIST/DIHYDRO PE [Concomitant]
     Indication: NASAL CONGESTION
  22. MECLIZINE [Concomitant]
  23. CEFPROZIL [Concomitant]
  24. NEXIUM [Suspect]
     Route: 048
  25. PREMARIN [Concomitant]
  26. AMOXICILLIN [Concomitant]
  27. PROMETHAZINE [Concomitant]
     Indication: NAUSEA
  28. NAPROXEN [Concomitant]
     Indication: PAIN

REACTIONS (7)
  - NASAL CONGESTION [None]
  - PAIN [None]
  - DEPRESSION [None]
  - NAUSEA [None]
  - VOMITING [None]
  - COUGH [None]
  - SINUS DISORDER [None]
